FAERS Safety Report 8257968-5 (Version None)
Quarter: 2012Q2

REPORT INFORMATION
  Report Type: 
  Country: None (occurrence: None)
  Receive Date: 20120404
  Receipt Date: 20120323
  Transmission Date: 20120825
  Serious: Yes (Disabling)
  Sender: FDA-Public Use
  Company Number: US-JNJFOC-20120304958

PATIENT
  Sex: Female
  Weight: 24.4 kg

DRUGS (4)
  1. BENADRYL [Concomitant]
     Indication: PREMEDICATION
     Route: 065
  2. REMICADE [Suspect]
     Indication: CROHN'S DISEASE
     Route: 042
     Dates: start: 20110701
  3. TYLENOL [Concomitant]
     Indication: PREMEDICATION
     Route: 065
  4. ELAVIL [Concomitant]
     Indication: MIGRAINE
     Route: 065

REACTIONS (3)
  - PYREXIA [None]
  - HEADACHE [None]
  - SINUSITIS [None]
